FAERS Safety Report 8830425 (Version 1)
Quarter: 2012Q4

REPORT INFORMATION
  Report Type: 
  Country: US (occurrence: US)
  Receive Date: 20121009
  Receipt Date: 20121009
  Transmission Date: 20130627
  Serious: Yes (Hospitalization)
  Sender: FDA-Public Use
  Company Number: US-SANOFI-AVENTIS-2012SA072679

PATIENT
  Age: 45 Year
  Sex: Female

DRUGS (3)
  1. OXALIPLATIN [Suspect]
     Indication: CHOLANGIOCARCINOMA
     Dosage: 13 infusions
     Route: 065
  2. GEMCITABINE [Suspect]
     Indication: CHOLANGIOCARCINOMA
     Dosage: 13 infusions
     Route: 065
  3. BEVACIZUMAB [Suspect]
     Indication: CHOLANGIOCARCINOMA
     Dosage: 13 infusions
     Route: 065

REACTIONS (11)
  - Posterior reversible encephalopathy syndrome [Recovered/Resolved]
  - Unresponsive to stimuli [Recovered/Resolved]
  - Headache [Recovered/Resolved]
  - Grand mal convulsion [Recovered/Resolved]
  - Confusional state [Recovered/Resolved]
  - Restlessness [Recovered/Resolved]
  - Sinus tachycardia [Recovered/Resolved]
  - Agitation [Recovered/Resolved]
  - Hypertension [Recovering/Resolving]
  - Proteinuria [Recovered/Resolved]
  - Anterograde amnesia [Unknown]
